FAERS Safety Report 10663913 (Version 1)
Quarter: 2014Q4

REPORT INFORMATION
  Report Type: Spontaneous
  Country: US (occurrence: None)
  Receive Date: 20141217
  Receipt Date: 20141217
  Transmission Date: 20150529
  Serious: Yes (Hospitalization)
  Sender: FDA-Public Use
  Company Number: 201412085

PATIENT
  Age: 53 Year
  Sex: Male

DRUGS (1)
  1. TESTIM [Suspect]
     Active Substance: TESTOSTERONE
     Indication: BLOOD TESTOSTERONE DECREASED
     Route: 062
     Dates: start: 20081210, end: 201205

REACTIONS (10)
  - Brain stem infarction [None]
  - Asthenia [None]
  - Nervous system disorder [None]
  - Anhedonia [None]
  - Sexual relationship change [None]
  - Fear [None]
  - Economic problem [None]
  - Anxiety [None]
  - Dysarthria [None]
  - Gait disturbance [None]

NARRATIVE: CASE EVENT DATE: 20120504
